FAERS Safety Report 13905961 (Version 1)
Quarter: 2017Q3

REPORT INFORMATION
  Report Type: Spontaneous
  Country: US (occurrence: US)
  Receive Date: 20170825
  Receipt Date: 20170825
  Transmission Date: 20171127
  Serious: Yes (Other)
  Sender: FDA-Public Use
  Company Number: None

PATIENT
  Age: 56 Year
  Sex: Female
  Weight: 94.5 kg

DRUGS (2)
  1. VITAMINS [Concomitant]
     Active Substance: VITAMINS
  2. COLGARE PREVIDENT VARNISH, MINT FLUORIDE [Suspect]
     Active Substance: SODIUM FLUORIDE
     Indication: DENTAL DISORDER PROPHYLAXIS
     Dosage: ?          OTHER ROUTE:APPLIED TO TEETH?
     Route: 061
     Dates: start: 20170823, end: 20170823

REACTIONS (3)
  - Dyspepsia [None]
  - Anaphylactic reaction [None]
  - Liquid product physical issue [None]

NARRATIVE: CASE EVENT DATE: 20170823
